FAERS Safety Report 9480191 (Version 1)
Quarter: 2013Q3

REPORT INFORMATION
  Report Type: Spontaneous
  Country: US (occurrence: US)
  Receive Date: 20130828
  Receipt Date: 20130828
  Transmission Date: 20140515
  Serious: Yes (Other)
  Sender: FDA-Public Use
  Company Number: US-AMGEN-KDL085984

PATIENT
  Age: 40 Year
  Sex: Female

DRUGS (2)
  1. ENBREL [Suspect]
     Indication: PRODUCT USED FOR UNKNOWN INDICATION
     Dosage: 25 MG, 2 TIMES/WK
     Route: 058
     Dates: start: 20021204
  2. METHOTREXATE [Concomitant]

REACTIONS (3)
  - Cardiac failure congestive [Unknown]
  - Ventricular extrasystoles [Unknown]
  - Palpitations [Unknown]
